FAERS Safety Report 6275956-5 (Version None)
Quarter: 2009Q3

REPORT INFORMATION
  Report Type: 
  Country: None (occurrence: None)
  Receive Date: 20090721
  Receipt Date: 20090713
  Transmission Date: 20100115
  Serious: Yes (Hospitalization)
  Sender: FDA-Public Use
  Company Number: JP-ASTRAZENECA-2009SE02396

PATIENT
  Age: 78 Year
  Sex: Female
  Weight: 45 kg

DRUGS (6)
  1. IRESSA [Suspect]
     Indication: LUNG NEOPLASM MALIGNANT
     Route: 048
     Dates: start: 20090107, end: 20090217
  2. IRESSA [Suspect]
     Dosage: 250 MG EVERY 5 DAYS
     Route: 048
     Dates: start: 20090307, end: 20090307
  3. IRESSA [Suspect]
     Dosage: ONE-FOURTH OF THE TABLET/DAY FOR 2 WEEKS, AND THEN DISCONTINUED FOR 2 WEEKS.
     Route: 048
     Dates: start: 20090607
  4. LENDORMIN D [Concomitant]
     Indication: INSOMNIA
     Route: 048
     Dates: start: 20081107
  5. MAGMITT [Concomitant]
     Indication: CONSTIPATION
     Route: 048
     Dates: start: 20081110
  6. MELBIN [Concomitant]
     Indication: DIABETES MELLITUS
     Route: 048
     Dates: start: 20081121

REACTIONS (1)
  - HEPATIC FUNCTION ABNORMAL [None]
